FAERS Safety Report 8371183-6 (Version None)
Quarter: 2012Q2

REPORT INFORMATION
  Report Type: 
  Country: None (occurrence: None)
  Receive Date: 20120518
  Receipt Date: 20120503
  Transmission Date: 20120825
  Serious: Yes (Other)
  Sender: FDA-Public Use
  Company Number: US-SHIRE-ALL1-2012-02250

PATIENT
  Sex: Male

DRUGS (3)
  1. DEXTROAMPHETAMINE [Suspect]
     Dosage: UNK MG ( 10 MG IN THE MORNING AND NOON AND 10-15 MG IN THE EVENING), 3X/DAY:TID
     Route: 048
  2. ALCOHOL [Suspect]
     Indication: PRODUCT USED FOR UNKNOWN INDICATION
     Dosage: UNK, UNKNOWN
     Route: 048
  3. DEXTROAMPHETAMINE [Suspect]
     Indication: ATTENTION DEFICIT/HYPERACTIVITY DISORDER
     Dosage: 10 MG, 2X/DAY:BID(WEEKDAYS)
     Route: 048

REACTIONS (5)
  - DRUG INTERACTION [None]
  - THEFT [None]
  - SEXUAL ABUSE [None]
  - LEGAL PROBLEM [None]
  - AGGRESSION [None]
